FAERS Safety Report 9522896 (Version 1)
Quarter: 2013Q3

REPORT INFORMATION
  Report Type: Spontaneous
  Country: CA (occurrence: None)
  Receive Date: 20130911
  Receipt Date: 20130911
  Transmission Date: 20140515
  Serious: No
  Sender: FDA-Public Use
  Company Number: AECAN201200553

PATIENT
  Age: 63 Year
  Sex: Male

DRUGS (1)
  1. IGIVNEX [Suspect]
     Indication: WALDENSTROM^S MACROGLOBULINAEMIA
     Route: 042
     Dates: start: 20121212

REACTIONS (2)
  - Back pain [None]
  - Tremor [None]
